FAERS Safety Report 18409269 (Version 1)
Quarter: 2020Q4

REPORT INFORMATION
  Report Type: Spontaneous
  Country: PL (occurrence: PL)
  Receive Date: 20201021
  Receipt Date: 20201021
  Transmission Date: 20210114
  Serious: Yes (Death, Hospitalization, Other)
  Sender: FDA-Public Use
  Company Number: PL-ELI_LILLY_AND_COMPANY-PL202010006825

PATIENT
  Age: 26 Year
  Sex: Male

DRUGS (3)
  1. CISPLATIN. [Suspect]
     Active Substance: CISPLATIN
     Dosage: UNK
     Route: 065
  2. CISPLATIN. [Suspect]
     Active Substance: CISPLATIN
     Indication: PERITONEAL MESOTHELIOMA MALIGNANT
     Dosage: UNK UNK, UNKNOWN
     Route: 065
     Dates: start: 201810
  3. PEMETREXED. [Suspect]
     Active Substance: PEMETREXED
     Indication: PERITONEAL MESOTHELIOMA MALIGNANT
     Dosage: UNK UNK, UNKNOWN
     Route: 065
     Dates: start: 201810

REACTIONS (3)
  - Gastrointestinal obstruction [Fatal]
  - Off label use [Unknown]
  - Anaemia [Unknown]

NARRATIVE: CASE EVENT DATE: 201909
